FAERS Safety Report 4424459-9 (Version None)
Quarter: 2004Q3

REPORT INFORMATION
  Report Type: 
  Country: None (occurrence: None)
  Receive Date: 20040812
  Receipt Date: 20040809
  Transmission Date: 20050211
  Serious: Yes (Death, Hospitalization)
  Sender: FDA-Public Use
  Company Number: HU-BRISTOL-MYERS SQUIBB COMPANY-12664132

PATIENT
  Age: 48 Year
  Sex: Female

DRUGS (3)
  1. CYCLOPHOSPHAMIDE [Suspect]
     Indication: NON-HODGKIN'S LYMPHOMA
     Route: 042
  2. VINCRISTINE [Concomitant]
     Indication: NON-HODGKIN'S LYMPHOMA
     Route: 042
  3. PREDNISOLONE [Concomitant]
     Route: 048

REACTIONS (5)
  - AGRANULOCYTOSIS [None]
  - ALVEOLITIS [None]
  - ANAEMIA [None]
  - PARANEOPLASTIC SYNDROME [None]
  - RESPIRATORY FAILURE [None]
